FAERS Safety Report 9920520 (Version 1)
Quarter: 2014Q1

REPORT INFORMATION
  Report Type: Spontaneous
  Country: US (occurrence: US)
  Receive Date: 20140224
  Receipt Date: 20140224
  Transmission Date: 20141002
  Serious: No
  Sender: FDA-Public Use
  Company Number: US-NOVEN-13US008325

PATIENT
  Age: 49 Year
  Sex: Female

DRUGS (5)
  1. MINIVELLE [Suspect]
     Indication: HOT FLUSH
     Dosage: 0.05 MG, UNK
     Route: 062
     Dates: start: 201310, end: 20131123
  2. MINIVELLE [Suspect]
     Dosage: 0.1 MG, UNK
     Route: 062
     Dates: start: 201310, end: 20131123
  3. RELPAX [Concomitant]
     Indication: MIGRAINE
  4. TORADOL [Concomitant]
     Indication: MIGRAINE
  5. PREDNISONE [Concomitant]
     Indication: MIGRAINE

REACTIONS (4)
  - Drug prescribing error [Recovered/Resolved]
  - Blood oestrogen increased [Not Recovered/Not Resolved]
  - Breast pain [Not Recovered/Not Resolved]
  - Wrong technique in drug usage process [Unknown]
